FAERS Safety Report 12508670 (Version 1)
Quarter: 2016Q2

REPORT INFORMATION
  Report Type: Spontaneous
  Country: US (occurrence: US)
  Receive Date: 20160629
  Receipt Date: 20160629
  Transmission Date: 20160815
  Serious: Yes (Hospitalization, Other)
  Sender: FDA-Public Use
  Company Number: US-UNITED THERAPEUTICS-UNT-2016-006041

PATIENT
  Age: 74 Year
  Sex: Female
  Weight: 62.13 kg

DRUGS (6)
  1. REMODULIN [Suspect]
     Active Substance: TREPROSTINIL
     Dosage: 0.055 ?G/KG, CONTINUING
     Route: 058
  2. REMODULIN [Suspect]
     Active Substance: TREPROSTINIL
     Dosage: 0.051 ?G/KG, CONTINUING
     Route: 058
  3. REVATIO [Concomitant]
     Active Substance: SILDENAFIL CITRATE
     Indication: PRODUCT USED FOR UNKNOWN INDICATION
  4. REMODULIN [Suspect]
     Active Substance: TREPROSTINIL
     Indication: PULMONARY ARTERIAL HYPERTENSION
     Dosage: 0.042 ?G/KG, CONTINUING
     Route: 058
     Dates: start: 20141125
  5. REMODULIN [Suspect]
     Active Substance: TREPROSTINIL
     Dosage: 0.058 ?G/KG, CONTINUING
     Route: 058
  6. VERAPAMIL [Concomitant]
     Active Substance: VERAPAMIL HYDROCHLORIDE
     Indication: PRODUCT USED FOR UNKNOWN INDICATION

REACTIONS (17)
  - Nausea [Unknown]
  - Malaise [Unknown]
  - Infusion site infection [Unknown]
  - Pain in extremity [Unknown]
  - Cyanosis [Unknown]
  - Pain [Unknown]
  - Infusion site inflammation [Unknown]
  - Oxygen saturation decreased [Unknown]
  - Decreased appetite [Unknown]
  - Urine output decreased [Unknown]
  - Fatigue [Unknown]
  - Weight decreased [Unknown]
  - Cor pulmonale chronic [Unknown]
  - Pulmonary arterial hypertension [Unknown]
  - Frequent bowel movements [Unknown]
  - Chills [Unknown]
  - Malabsorption from administration site [Unknown]

NARRATIVE: CASE EVENT DATE: 201604
